FAERS Safety Report 4832300-5 (Version None)
Quarter: 2005Q4

REPORT INFORMATION
  Report Type: 
  Country: None (occurrence: None)
  Receive Date: 20051116
  Receipt Date: 20051116
  Transmission Date: 20060501
  Serious: Yes (Life-Threatening)
  Sender: FDA-Public Use
  Company Number: None

PATIENT
  Sex: Female

DRUGS (2)
  1. LAMICTAL [Suspect]
     Indication: DELUSION
     Dosage: 25MG-}150 MG QOD -} PO
     Route: 048
     Dates: start: 20050427, end: 20050627
  2. LAMICTAL [Suspect]
     Indication: HALLUCINATION
     Dosage: 25MG-}150 MG QOD -} PO
     Route: 048
     Dates: start: 20050427, end: 20050627

REACTIONS (2)
  - RASH [None]
  - STEVENS-JOHNSON SYNDROME [None]
